FAERS Safety Report 19352671 (Version 2)
Quarter: 2021Q3

REPORT INFORMATION
  Report Type: Spontaneous
  Country: JP (occurrence: JP)
  Receive Date: 20210601
  Receipt Date: 20210712
  Transmission Date: 20211014
  Serious: No
  Sender: FDA-Public Use
  Company Number: JP-FERRINGPH-2021FE03203

PATIENT
  Sex: Female

DRUGS (2)
  1. MINIRINMELT [Suspect]
     Active Substance: DESMOPRESSIN ACETATE
     Indication: DIABETES INSIPIDUS
     Dosage: 30 UG, DAILY
     Route: 065
  2. MINIRINMELT [Suspect]
     Active Substance: DESMOPRESSIN ACETATE
     Dosage: 90 UG, DAILY
     Route: 065

REACTIONS (2)
  - Off label use [Unknown]
  - Wrong technique in product usage process [Unknown]
